FAERS Safety Report 8557225-3 (Version None)
Quarter: 2012Q3

REPORT INFORMATION
  Report Type: 
  Country: None (occurrence: None)
  Receive Date: 20120801
  Receipt Date: 20120731
  Transmission Date: 20120928
  Serious: Yes (Other)
  Sender: FDA-Public Use
  Company Number: PHHY2012HU044042

PATIENT
  Sex: Female

DRUGS (5)
  1. COVEREX [Concomitant]
     Dosage: UNK
     Dates: start: 20080101
  2. LETROZOLE [Suspect]
     Indication: BREAST CANCER
     Dosage: 2.5 MG, DAILY
     Dates: start: 20090521
  3. GLIMEPIRIDE [Concomitant]
     Dosage: UNK
     Dates: start: 20080101
  4. DEPRESSAN [Concomitant]
     Dosage: UNK
     Dates: start: 20080101
  5. CHEMOTHERAPEUTICS NOS [Concomitant]

REACTIONS (6)
  - METASTASES TO ADRENALS [None]
  - NEOPLASM PROGRESSION [None]
  - PULMONARY FIBROSIS [None]
  - METASTASES TO BONE [None]
  - BONE PAIN [None]
  - NEOPLASM MALIGNANT [None]
